FAERS Safety Report 7231465-8 (Version None)
Quarter: 2011Q1

REPORT INFORMATION
  Report Type: 
  Country: None (occurrence: None)
  Receive Date: 20110118
  Receipt Date: 20110113
  Transmission Date: 20110831
  Serious: Yes (Other)
  Sender: FDA-Public Use
  Company Number: DE-PFIZER INC-2010127467

PATIENT
  Age: 65 Year
  Sex: Male
  Weight: 80 kg

DRUGS (7)
  1. HEPAR SL FORTE [Concomitant]
     Indication: HYPERLIPIDAEMIA
     Dosage: UNK
  2. SORTIS [Interacting]
     Indication: MYOCARDIAL INFARCTION
  3. SORTIS [Suspect]
     Indication: HYPERCHOLESTEROLAEMIA
     Dosage: 10 MG, UNK
     Route: 048
     Dates: start: 19970101
  4. NOVONORM [Concomitant]
     Indication: HYPOGLYCAEMIA
     Dosage: 1 MG, UNK
  5. NOVONORM [Concomitant]
     Indication: DIABETES MELLITUS
  6. AMARYL [Interacting]
     Indication: TYPE 2 DIABETES MELLITUS
     Dosage: 1 MG, UNK
  7. APROVEL [Concomitant]
     Indication: HYPERTENSION
     Dosage: UNK

REACTIONS (8)
  - MYOPATHY [None]
  - DRUG INTERACTION [None]
  - HYPOAESTHESIA [None]
  - TENDON PAIN [None]
  - MUSCULOSKELETAL STIFFNESS [None]
  - TYPE 2 DIABETES MELLITUS [None]
  - BLOOD CREATINE PHOSPHOKINASE INCREASED [None]
  - MUSCLE SPASMS [None]
